FAERS Safety Report 18305062 (Version 1)
Quarter: 2020Q3

REPORT INFORMATION
  Report Type: Spontaneous
  Country: US (occurrence: US)
  Receive Date: 20200923
  Receipt Date: 20200923
  Transmission Date: 20201103
  Serious: Yes (Hospitalization, Other)
  Sender: FDA-Public Use
  Company Number: US-HIKMA PHARMACEUTICALS USA INC.-US-H14001-20-52106

PATIENT
  Age: 82 Year
  Sex: Male

DRUGS (7)
  1. DEXTROSE. [Concomitant]
     Active Substance: DEXTROSE
     Indication: MYELODYSPLASTIC SYNDROME
  2. METHOTREXATE. [Concomitant]
     Active Substance: METHOTREXATE
     Indication: MYELODYSPLASTIC SYNDROME
  3. INSULIN?LIKE GROWTH FACTOR I [Concomitant]
     Indication: DISEASE PROGRESSION
  4. DEXTROSE. [Concomitant]
     Active Substance: DEXTROSE
     Indication: DISEASE PROGRESSION
     Dosage: 90?MIN IV INFUSION IN 250 ML OF 5% DEXTROSE ON DAYS 1, 8, AND 15 OF A FOUR?WEEK TREATMENT CYCLE
     Route: 065
     Dates: start: 201802, end: 2018
  5. LOSARTAN. [Suspect]
     Active Substance: LOSARTAN
     Indication: HYPERTENSION
     Dosage: UNKNOWN
     Route: 065
  6. METHOTREXATE. [Concomitant]
     Active Substance: METHOTREXATE
     Indication: DISEASE PROGRESSION
     Dosage: 0.20 UEQ/KG, 765IGF?MTX WAS GIVEN AT THE ASSIGNED DOSE AS A 90?MIN IV INFUSION IN 250 ML OF 5% DEXTR
     Route: 065
     Dates: start: 201802, end: 2018
  7. INSULIN?LIKE GROWTH FACTOR I [Concomitant]
     Indication: MYELODYSPLASTIC SYNDROME
     Dosage: 0.20 UEQ/KG, 765IGF?MTX WAS GIVEN AT THE ASSIGNED DOSE AS A 90?MIN IV INFUSION IN 250 ML OF 5% DEXTR
     Route: 065
     Dates: start: 201802, end: 2018

REACTIONS (2)
  - Syncope [Unknown]
  - Orthostatic hypotension [Unknown]

NARRATIVE: CASE EVENT DATE: 2018
